FAERS Safety Report 9475176 (Version 1)
Quarter: 2013Q3

REPORT INFORMATION
  Report Type: Spontaneous
  Country: US (occurrence: US)
  Receive Date: 20130824
  Receipt Date: 20130824
  Transmission Date: 20140515
  Serious: Yes (Other)
  Sender: FDA-Public Use
  Company Number: PHHY2013US089815

PATIENT
  Sex: Female

DRUGS (4)
  1. DEXAMETHASONE [Suspect]
     Indication: THROMBOCYTOPENIA
  2. HYDROCORTISONE [Suspect]
     Dosage: 50 MG, Q6H
     Route: 042
  3. IMMUNOGLOBULIN I.V [Suspect]
     Indication: THROMBOCYTOPENIA
  4. ROMIPLOSTIM [Suspect]
     Indication: THROMBOCYTOPENIA

REACTIONS (4)
  - Premature labour [Unknown]
  - Thrombocytosis [Unknown]
  - Thrombocytopenia [Unknown]
  - Maternal exposure before pregnancy [Unknown]
